FAERS Safety Report 18997740 (Version 2)
Quarter: 2021Q2

REPORT INFORMATION
  Report Type: Spontaneous
  Country: US (occurrence: US)
  Receive Date: 20210311
  Receipt Date: 20210401
  Transmission Date: 20210717
  Serious: Yes (Other)
  Sender: FDA-Public Use
  Company Number: US-HIKMA PHARMACEUTICALS USA INC.-US-H14001-21-00988

PATIENT
  Sex: Female

DRUGS (5)
  1. VENTOLIN [Concomitant]
     Active Substance: ALBUTEROL SULFATE
     Indication: RESPIRATION ABNORMAL
     Dosage: UNKNOWN
     Route: 065
  2. METHOCARBAMOL. [Concomitant]
     Active Substance: METHOCARBAMOL
     Indication: PRODUCT USED FOR UNKNOWN INDICATION
     Route: 065
  3. CLONIDINE. [Concomitant]
     Active Substance: CLONIDINE
     Indication: PRODUCT USED FOR UNKNOWN INDICATION
     Route: 048
  4. GABAPENTIN. [Concomitant]
     Active Substance: GABAPENTIN
     Indication: NERVOUS SYSTEM DISORDER PROPHYLAXIS
     Route: 065
  5. PROPANTHELINE [Suspect]
     Active Substance: PROPANTHELINE
     Indication: HYPERHIDROSIS
     Dosage: THREE TABLETS WITH MEALS, TWO TABLETS AT BED TIME
     Route: 048

REACTIONS (7)
  - Withdrawal syndrome [Unknown]
  - Hyperthermia [Unknown]
  - Burning sensation [Unknown]
  - Thirst [Unknown]
  - Product dose omission issue [Unknown]
  - Off label use [Unknown]
  - Hyperhidrosis [Unknown]
